FAERS Safety Report 4376271-7 (Version None)
Quarter: 2004Q2

REPORT INFORMATION
  Report Type: 
  Country: None (occurrence: None)
  Receive Date: 20040608
  Receipt Date: 20030226
  Transmission Date: 20050107
  Serious: Yes (Hospitalization)
  Sender: FDA-Public Use
  Company Number: 200310693BCC

PATIENT
  Age: 17 Year
  Sex: Female

DRUGS (2)
  1. ALEVE [Suspect]
     Dosage: 440 MG, QD, ORAL; 440 MG, QD ORAL
     Route: 048
     Dates: start: 20030224
  2. ALEVE [Suspect]
     Dosage: 440 MG, QD, ORAL; 440 MG, QD ORAL
     Route: 048
     Dates: start: 20030226

REACTIONS (4)
  - HYPERSENSITIVITY [None]
  - PRURITUS [None]
  - SWELLING [None]
  - SWELLING FACE [None]
